FAERS Safety Report 7026562-6 (Version None)
Quarter: 2010Q4

REPORT INFORMATION
  Report Type: 
  Country: None (occurrence: None)
  Receive Date: 20101004
  Receipt Date: 20100922
  Transmission Date: 20110411
  Serious: Yes (Other)
  Sender: FDA-Public Use
  Company Number: CO-WYE-H17734810

PATIENT
  Sex: Female

DRUGS (11)
  1. RAPAMUNE [Suspect]
     Indication: PROPHYLAXIS AGAINST TRANSPLANT REJECTION
     Route: 048
     Dates: start: 20090101
  2. PREDNISOLONE [Concomitant]
     Indication: PROPHYLAXIS AGAINST TRANSPLANT REJECTION
     Dates: start: 20060101
  3. OMEPRAZOLE [Concomitant]
     Indication: PROPHYLAXIS AGAINST GASTROINTESTINAL ULCER
     Dates: start: 20060101
  4. IMIPRAMINE [Concomitant]
     Indication: MUSCLE RELAXANT THERAPY
     Dates: start: 20060101
  5. LOVASTATIN [Concomitant]
     Indication: BLOOD TRIGLYCERIDES INCREASED
     Dates: start: 20060101
  6. CLONIDINE [Concomitant]
     Indication: HYPERTENSION
     Dates: start: 20060101
  7. VERAPAMIL [Concomitant]
     Indication: HYPERTENSION
     Dates: start: 20060101
  8. NITROFURANTOIN [Concomitant]
     Indication: INFECTION PROPHYLAXIS
     Dates: start: 20060101
  9. ACETYLSALICYLIC ACID SRT [Concomitant]
     Indication: CARDIOVASCULAR EVENT PROPHYLAXIS
     Dosage: EVERY DAY
     Dates: start: 20060101
  10. CYCLOSPORINE [Concomitant]
     Indication: PROPHYLAXIS AGAINST TRANSPLANT REJECTION
     Dates: start: 20060101
  11. ASCORBIC ACID [Concomitant]
     Indication: VITAMIN SUPPLEMENTATION
     Dosage: TID
     Dates: start: 20060101

REACTIONS (5)
  - DERMATITIS [None]
  - DERMATITIS ALLERGIC [None]
  - DIABETES MELLITUS [None]
  - RASH ERYTHEMATOUS [None]
  - SKIN LESION [None]
